FAERS Safety Report 5113284-1 (Version None)
Quarter: 2006Q3

REPORT INFORMATION
  Report Type: 
  Country: None (occurrence: None)
  Receive Date: 20060920
  Receipt Date: 20060905
  Transmission Date: 20061208
  Serious: Yes (Hospitalization, Other)
  Sender: FDA-Public Use
  Company Number: US200603002477

PATIENT
  Age: 47 Year
  Sex: Female
  Weight: 72.6 kg

DRUGS (5)
  1. ZYPREXA [Suspect]
     Indication: DEPRESSION
     Dosage: 10 MG, ORAL
     Route: 048
     Dates: start: 20000101, end: 20020101
  2. ZYPREXA [Suspect]
     Indication: DEPRESSION
     Dosage: 10 MG, ORAL
     Route: 048
     Dates: start: 20040101
  3. SEROQUEL [Concomitant]
  4. LORAZEPAM [Concomitant]
  5. MEDROXYPROGESTERONE [Concomitant]

REACTIONS (8)
  - DIABETES MELLITUS [None]
  - HAEMORRHAGE [None]
  - MENORRHAGIA [None]
  - METABOLIC DISORDER [None]
  - PANCREATITIS [None]
  - VAGINAL OPERATION [None]
  - VISION BLURRED [None]
  - WEIGHT DECREASED [None]
